FAERS Safety Report 11283460 (Version 2)
Quarter: 2015Q3

REPORT INFORMATION
  Report Type: Spontaneous
  Country: US (occurrence: US)
  Receive Date: 20150720
  Receipt Date: 20150722
  Transmission Date: 20151125
  Serious: Yes (Other)
  Sender: FDA-Public Use
  Company Number: US-B.I. PHARMACEUTICALS,INC./RIDGEFIELD-2015-BI-37934BP

PATIENT
  Age: 78 Year
  Sex: Male
  Weight: 72 kg

DRUGS (2)
  1. VENTOLIN HFA [Concomitant]
     Active Substance: ALBUTEROL SULFATE
     Indication: PRODUCT USED FOR UNKNOWN INDICATION
     Route: 055
  2. COMBIVENT [Suspect]
     Active Substance: ALBUTEROL SULFATE\IPRATROPIUM BROMIDE
     Indication: PRODUCT USED FOR UNKNOWN INDICATION
     Dosage: STRENGTH: 18 MCG / 103 MCG
     Route: 055

REACTIONS (14)
  - Blood urine present [Recovered/Resolved]
  - Hernia [Recovered/Resolved]
  - Skin discolouration [Recovered/Resolved]
  - Dyspnoea [Not Recovered/Not Resolved]
  - Abnormal loss of weight [Not Recovered/Not Resolved]
  - Hernia perforation [Recovered/Resolved]
  - Feeling cold [Not Recovered/Not Resolved]
  - Feeling hot [Not Recovered/Not Resolved]
  - Haematemesis [Recovered/Resolved]
  - Blood pressure increased [Recovered/Resolved]
  - Mental status changes [Not Recovered/Not Resolved]
  - Penile swelling [Recovered/Resolved]
  - Testicular swelling [Recovered/Resolved]
  - Flushing [Not Recovered/Not Resolved]

NARRATIVE: CASE EVENT DATE: 20150325
